FAERS Safety Report 5950193-X (Version None)
Quarter: 2008Q4

REPORT INFORMATION
  Report Type: 
  Country: None (occurrence: None)
  Receive Date: 20081112
  Receipt Date: 20081104
  Transmission Date: 20090506
  Serious: Yes (Hospitalization)
  Sender: FDA-Public Use
  Company Number: A0739792A

PATIENT
  Age: 61 Year
  Sex: Female
  Weight: 128.6 kg

DRUGS (10)
  1. TYKERB [Suspect]
     Indication: BREAST CANCER RECURRENT
     Dosage: 1250MG UNKNOWN
     Route: 048
     Dates: start: 20080712, end: 20080714
  2. XELODA [Concomitant]
     Indication: BREAST CANCER RECURRENT
     Route: 048
  3. LIPITOR [Concomitant]
     Dosage: 10MG PER DAY
     Route: 048
  4. COREG [Concomitant]
     Dosage: 3.125MG PER DAY
     Route: 048
  5. GLUCOTROL XL [Concomitant]
     Dosage: 10MG TWICE PER DAY
  6. INDOCIN [Concomitant]
     Dosage: 50MG THREE TIMES PER DAY
     Route: 048
  7. PROTONIX [Concomitant]
     Dosage: 40MG PER DAY
     Route: 048
  8. AVANDIA [Concomitant]
     Dosage: 8MG PER DAY
     Route: 048
  9. MAXZIDE [Concomitant]
     Dosage: 25MG PER DAY
  10. VALSARTAN [Concomitant]
     Dosage: 80MG PER DAY
     Route: 048

REACTIONS (12)
  - CHEST PAIN [None]
  - ELECTROCARDIOGRAM ST SEGMENT ELEVATION [None]
  - ELECTROCARDIOGRAM ST-T CHANGE [None]
  - FACIAL PAIN [None]
  - MITRAL VALVE INCOMPETENCE [None]
  - NAUSEA [None]
  - NECK PAIN [None]
  - PAIN IN JAW [None]
  - PERICARDIAL EFFUSION [None]
  - PULMONARY HYPERTENSION [None]
  - TACHYCARDIA [None]
  - TRICUSPID VALVE INCOMPETENCE [None]
